FAERS Safety Report 9483904 (Version 2)
Quarter: 2013Q3

REPORT INFORMATION
  Report Type: Spontaneous
  Country: CA (occurrence: CA)
  Receive Date: 20130828
  Receipt Date: 20130828
  Transmission Date: 20140515
  Serious: Yes (Death, Hospitalization)
  Sender: FDA-Public Use
  Company Number: CA-AMGEN-KDL252613

PATIENT
  Age: 70 Year
  Sex: Female
  Weight: 56.8 kg

DRUGS (1)
  1. ENBREL [Suspect]
     Indication: RHEUMATOID ARTHRITIS
     Dosage: 50 MG, QWK
     Route: 058
     Dates: start: 20070117

REACTIONS (6)
  - Death [Fatal]
  - Coma [Unknown]
  - Myocardial infarction [Recovering/Resolving]
  - Fall [Unknown]
  - Fluid retention [Unknown]
  - Malaise [Unknown]
